FAERS Safety Report 4584226-2 (Version None)
Quarter: 2005Q1

REPORT INFORMATION
  Report Type: 
  Country: None (occurrence: None)
  Receive Date: 20050125
  Receipt Date: 20041028
  Transmission Date: 20050727
  Serious: No
  Sender: FDA-Public Use
  Company Number: USA041082536

PATIENT
  Age: 77 Year
  Sex: Female
  Weight: 61 kg

DRUGS (7)
  1. FORTEO [Suspect]
     Indication: OSTEOPOROSIS
     Dosage: 20 UG/1 DAY
     Dates: start: 20041027
  2. CALCIUM GLUCONATE [Concomitant]
  3. FOSAMAX [Concomitant]
  4. NAPROXEN SODIUM [Concomitant]
  5. COMBIVENT [Concomitant]
  6. FLONASE [Concomitant]
  7. HYDROXYZINE [Concomitant]

REACTIONS (4)
  - BACK PAIN [None]
  - DYSPNOEA [None]
  - FATIGUE [None]
  - VOMITING [None]
